FAERS Safety Report 11404632 (Version 2)
Quarter: 2015Q4

REPORT INFORMATION
  Report Type: Spontaneous
  Country: US (occurrence: US)
  Receive Date: 20150821
  Receipt Date: 20151002
  Transmission Date: 20160304
  Serious: Yes (Other)
  Sender: FDA-Public Use
  Company Number: US-ASTRAZENECA-2015SE78118

PATIENT
  Age: 815 Month
  Sex: Male
  Weight: 76.7 kg

DRUGS (26)
  1. ANASTROZOLE. [Concomitant]
     Active Substance: ANASTROZOLE
     Indication: ENDOCRINE DISORDER
     Route: 048
     Dates: start: 20150324
  2. VITAMIN D3 [Concomitant]
     Active Substance: CHOLECALCIFEROL
     Dosage: 5000 UNIT ONE TWICE A DAY
     Route: 048
  3. MELATONIN [Concomitant]
     Active Substance: MELATONIN
  4. MAGNESIUM CITRATE. [Concomitant]
     Active Substance: MAGNESIUM CITRATE
     Dosage: 350 MG, 2 TSP BID
  5. VITAMIN B COMPLEX [Concomitant]
     Active Substance: CYANOCOBALAMIN\DEXPANTHENOL\NIACINAMIDE\PYRIDOXINE HYDROCHLORIDE\RIBOFLAVIN 5^-PHOSPHATE SODIUM\THIAMINE HYDROCHLORIDE\VITAMIN B COMPLEX
     Route: 048
  6. INSULIN [Concomitant]
     Active Substance: INSULIN NOS
     Dates: start: 20141215
  7. ENZYMES NOS [Concomitant]
     Indication: ENZYME SUPPLEMENTATION
  8. TIME RELEASE NIACIN [Concomitant]
  9. LITHIUM. [Concomitant]
     Active Substance: LITHIUM
  10. INSULIN [Concomitant]
     Active Substance: INSULIN NOS
     Dates: start: 20131119
  11. COENZYME Q10 [Concomitant]
     Active Substance: UBIDECARENONE
     Route: 048
  12. ACETYLCARNITINE [Concomitant]
     Active Substance: ACETYLCARNITINE
     Route: 048
  13. SELENIUM [Concomitant]
     Active Substance: SELENIUM
     Route: 048
  14. TRYPTOPHAN [Concomitant]
     Active Substance: TRYPTOPHAN
     Route: 048
  15. LUTEIN [Concomitant]
     Active Substance: LUTEIN
     Route: 048
  16. COCONUT OIL [Concomitant]
     Active Substance: COCONUT OIL
     Dosage: ONE TBSP QD
  17. ANASTROZOLE. [Concomitant]
     Active Substance: ANASTROZOLE
     Indication: HYPOGONADISM MALE
     Route: 048
     Dates: start: 20150324
  18. VITAMIN A [Concomitant]
     Active Substance: VITAMIN A
     Dosage: 5000 UNIT PER DROP. 2 DROPS A DAY
     Route: 048
  19. SINEMET [Concomitant]
     Active Substance: CARBIDOPA\LEVODOPA
     Dosage: 25-100 MG, 1-1/2 AT 7 AM, ONE AT 11 AM, 1 TABLET AT 3 PM, 1 AT 7 PM
     Route: 048
  20. RIBOFLAVIN SODIUM PHOSPHATE [Concomitant]
  21. MOLYBDENUM [Concomitant]
     Active Substance: MOLYBDENUM
  22. HCG [Concomitant]
     Active Substance: GONADOTROPHIN, CHORIONIC
     Indication: HYPOGONADISM MALE
     Dosage: 2000 UNITS/ML-0.75 ML, 3 DAYS A WEEK
     Route: 058
     Dates: start: 20131203
  23. HCG [Concomitant]
     Active Substance: GONADOTROPHIN, CHORIONIC
     Indication: ERECTILE DYSFUNCTION
     Dosage: 2000 UNITS/ML-0.75 ML, 3 DAYS A WEEK
     Route: 058
     Dates: start: 20131203
  24. BYDUREON [Suspect]
     Active Substance: EXENATIDE
     Route: 058
     Dates: start: 201506, end: 20150815
  25. ENTACAPONE. [Concomitant]
     Active Substance: ENTACAPONE
     Route: 048
  26. ZINC [Concomitant]
     Active Substance: ZINC\ZINC CHLORIDE

REACTIONS (8)
  - Injection site erythema [Unknown]
  - Injection site pain [Recovered/Resolved]
  - Panniculitis [Recovered/Resolved]
  - Injection site nodule [Recovered/Resolved]
  - Intentional product misuse [Unknown]
  - Injection site pruritus [Unknown]
  - Incorrect route of drug administration [Unknown]
  - Injection site mass [Unknown]

NARRATIVE: CASE EVENT DATE: 201506
